FAERS Safety Report 11411990 (Version 1)
Quarter: 2015Q3

REPORT INFORMATION
  Report Type: Spontaneous
  Country: US (occurrence: US)
  Receive Date: 20150821
  Receipt Date: 20150821
  Transmission Date: 20151125
  Serious: No
  Sender: FDA-Public Use
  Company Number: US-ELI_LILLY_AND_COMPANY-US201109002243

PATIENT
  Age: 79 Year
  Sex: Male

DRUGS (3)
  1. INSULIN [Concomitant]
     Active Substance: INSULIN NOS
     Dosage: UNK
     Dates: start: 1996
  2. LANTUS [Concomitant]
     Active Substance: INSULIN GLARGINE
  3. HUMULIN N [Suspect]
     Active Substance: INSULIN HUMAN
     Indication: DIABETES MELLITUS
     Dosage: UNK, PRN
     Dates: start: 20110901

REACTIONS (4)
  - Blood glucose increased [Unknown]
  - Insomnia [Unknown]
  - Feeling abnormal [Unknown]
  - Myalgia [Unknown]

NARRATIVE: CASE EVENT DATE: 20110901
